FAERS Safety Report 8888742 (Version 2)
Quarter: 2012Q4

REPORT INFORMATION
  Report Type: 
  Country: JP (occurrence: JP)
  Receive Date: 20121106
  Receipt Date: 20121113
  Transmission Date: 20130627
  Serious: Yes (Death, Other)
  Sender: FDA-Public Use
  Company Number: JP-SHIRE-ALL1-2012-05392

PATIENT
  Age: 30 None
  Sex: Male

DRUGS (3)
  1. IDURSULFASE [Suspect]
     Indication: MUCOPOLYSACCHARIDOSIS II
     Dosage: UNK, Unknown
     Route: 041
     Dates: start: 20090611
  2. FUROSEMIDE [Concomitant]
     Indication: MUCOPOLYSACCHARIDOSIS
     Dosage: UNK, Unknown
     Route: 048
  3. SPIRONOLACTONE [Concomitant]
     Indication: MUCOPOLYSACCHARIDOSIS
     Dosage: UNK, Unknown
     Route: 048

REACTIONS (3)
  - Death [Fatal]
  - Head injury [Unknown]
  - Fall [Unknown]
